FAERS Safety Report 16623886 (Version 1)
Quarter: 2019Q3

REPORT INFORMATION
  Report Type: Spontaneous
  Country: CA (occurrence: CA)
  Receive Date: 20190724
  Receipt Date: 20190724
  Transmission Date: 20191004
  Serious: Yes (Other)
  Sender: FDA-Public Use
  Company Number: CA-TEVA-2019-CA-1080938

PATIENT
  Age: 45 Year
  Sex: Male

DRUGS (6)
  1. CODEINE [Suspect]
     Active Substance: CODEINE
     Indication: PRODUCT USED FOR UNKNOWN INDICATION
     Route: 065
  2. HEROIN [Suspect]
     Active Substance: DIAMORPHINE
     Indication: PRODUCT USED FOR UNKNOWN INDICATION
     Route: 042
  3. MORPHINE SULFATE INJECTION 1MG/ML [Suspect]
     Active Substance: MORPHINE SULFATE
     Route: 065
  4. FENTANYL. [Suspect]
     Active Substance: FENTANYL
     Indication: PRODUCT USED FOR UNKNOWN INDICATION
     Route: 065
  5. DILAUDID [Suspect]
     Active Substance: HYDROMORPHONE HYDROCHLORIDE
     Indication: PRODUCT USED FOR UNKNOWN INDICATION
     Route: 042
  6. MORPHINE SULFATE INJECTION 1MG/ML [Suspect]
     Active Substance: MORPHINE SULFATE
     Indication: PRODUCT USED FOR UNKNOWN INDICATION
     Route: 042

REACTIONS (9)
  - Euphoric mood [Unknown]
  - Malaise [Unknown]
  - Substance abuse [Unknown]
  - Substance dependence [Unknown]
  - Homeless [Unknown]
  - Vein collapse [Unknown]
  - Limb injury [Unknown]
  - Blister [Unknown]
  - Glassy eyes [Unknown]
